FAERS Safety Report 4407120-6 (Version None)
Quarter: 2004Q3

REPORT INFORMATION
  Report Type: 
  Country: None (occurrence: None)
  Receive Date: 20040723
  Receipt Date: 20040723
  Transmission Date: 20050211
  Serious: Yes (Other)
  Sender: FDA-Public Use
  Company Number: None

PATIENT
  Age: 85 Year
  Sex: Male
  Weight: 80.7 kg

DRUGS (12)
  1. OMEPRAZOLE [Suspect]
  2. SULFAMETHOXAZOLE + TRIMETHOPRIM [Concomitant]
  3. NITROFURANTOIN MACROCRYSTALLINE [Concomitant]
  4. ATENOLOL [Concomitant]
  5. QUINIDINE HCL [Concomitant]
  6. VALIUM [Concomitant]
  7. VITAMIN E [Concomitant]
  8. VITAMIN C [Concomitant]
  9. CENTRUM [Concomitant]
  10. RITUXIMAB [Concomitant]
  11. FLUDARABINE PHOSPHATE [Concomitant]
  12. CYTOXAN [Concomitant]

REACTIONS (1)
  - DIARRHOEA [None]
